FAERS Safety Report 16822700 (Version 1)
Quarter: 2019Q3

REPORT INFORMATION
  Report Type: Spontaneous
  Country: US (occurrence: US)
  Receive Date: 20190918
  Receipt Date: 20190918
  Transmission Date: 20191005
  Serious: No
  Sender: FDA-Public Use
  Company Number: US-BRECKENRIDGE PHARMACEUTICAL, INC.-2074599

PATIENT
  Age: 66 Year
  Sex: Female
  Weight: 72.73 kg

DRUGS (1)
  1. EPLERENONE. [Suspect]
     Active Substance: EPLERENONE
     Indication: CARDIAC FAILURE
     Route: 048

REACTIONS (4)
  - Fatigue [None]
  - Dyspnoea [None]
  - Dizziness [None]
  - Drug ineffective [None]
